FAERS Safety Report 5780950-4 (Version None)
Quarter: 2008Q2

REPORT INFORMATION
  Report Type: 
  Country: None (occurrence: None)
  Receive Date: 20080620
  Receipt Date: 20080608
  Transmission Date: 20081010
  Serious: Yes (Other)
  Sender: FDA-Public Use
  Company Number: IL-PFIZER INC-2008048593

PATIENT
  Sex: Female

DRUGS (1)
  1. LYRICA [Suspect]
     Dosage: DAILY DOSE:175MG
     Dates: start: 20080501, end: 20080525

REACTIONS (6)
  - BRONCHITIS [None]
  - CELLULITIS [None]
  - HALLUCINATION [None]
  - INCOHERENT [None]
  - TREMOR [None]
  - WHEEZING [None]
